FAERS Safety Report 14887825 (Version 3)
Quarter: 2019Q2

REPORT INFORMATION
  Report Type: Report from Study
  Country: US (occurrence: US)
  Receive Date: 20180513
  Receipt Date: 20190529
  Transmission Date: 20190711
  Serious: Yes (Hospitalization)
  Sender: FDA-Public Use
  Company Number: PHEH2018US018438

PATIENT
  Age: 3 Year
  Sex: Female
  Weight: 15.9 kg

DRUGS (3)
  1. ILARIS [Suspect]
     Active Substance: CANAKINUMAB
     Dosage: 75 MG, EVERY 28 DAYS
     Route: 058
  2. ILARIS [Suspect]
     Active Substance: CANAKINUMAB
     Indication: FAMILIAL MEDITERRANEAN FEVER
     Dosage: 0.5 ML, QMO
     Route: 058
  3. ILARIS [Suspect]
     Active Substance: CANAKINUMAB
     Indication: CRYOPYRIN ASSOCIATED PERIODIC SYNDROME
     Dosage: 60 MG, EVERY 28 DAYS
     Route: 058

REACTIONS (8)
  - Dehydration [Unknown]
  - Pyrexia [Unknown]
  - Influenza [Unknown]
  - Myositis [Unknown]
  - Ear infection [Unknown]
  - Picornavirus infection [Not Recovered/Not Resolved]
  - C-reactive protein increased [Unknown]
  - Adenovirus infection [Not Recovered/Not Resolved]

NARRATIVE: CASE EVENT DATE: 20180404
